FAERS Safety Report 19974120 (Version 1)
Quarter: 2021Q4

REPORT INFORMATION
  Report Type: Spontaneous
  Country: US (occurrence: US)
  Receive Date: 20211018
  Receipt Date: 20211018
  Transmission Date: 20220303
  Serious: Yes (Hospitalization)
  Sender: FDA-Public Use
  Company Number: None

PATIENT
  Sex: Male

DRUGS (19)
  1. VIGABATRIN [Suspect]
     Active Substance: VIGABATRIN
     Indication: Epilepsy
     Dosage: 15ML BID PO - MIX 2 PKTS IN WATER
     Route: 048
     Dates: start: 20210817
  2. ALBUTEROL [Concomitant]
     Active Substance: ALBUTEROL
  3. BUDESONIDE [Concomitant]
     Active Substance: BUDESONIDE
  4. CETIRIZINE CHW [Concomitant]
  5. CIPRO 10% [Concomitant]
  6. CLOBAZAM [Concomitant]
     Active Substance: CLOBAZAM
  7. CLONAZEPAM [Concomitant]
     Active Substance: CLONAZEPAM
  8. CUVPOSA [Concomitant]
     Active Substance: GLYCOPYRROLATE
  9. EPANED [Concomitant]
     Active Substance: ENALAPRIL MALEATE
  10. EPIDILEX (RECTAL) [Concomitant]
  11. FAMOTIDINE [Concomitant]
     Active Substance: FAMOTIDINE
  12. FLUTICASONE SPR IRON [Concomitant]
  13. KATERZIA [Concomitant]
     Active Substance: AMLODIPINE BENZOATE
  14. LACTULOSE [Concomitant]
     Active Substance: LACTULOSE
  15. LEVETIRACETAM [Concomitant]
     Active Substance: LEVETIRACETAM
  16. MUCINEX CHLD [Concomitant]
  17. PREDNISONE [Concomitant]
     Active Substance: PREDNISONE
  18. SODIUM CHLOR NEB 3% [Concomitant]
  19. VITAMIN D [Concomitant]
     Active Substance: VITAMIN D NOS

REACTIONS (1)
  - Colectomy [None]
